FAERS Safety Report 15049031 (Version 1)
Quarter: 2018Q2

REPORT INFORMATION
  Report Type: Spontaneous
  Country: FR (occurrence: FR)
  Receive Date: 20180622
  Receipt Date: 20180622
  Transmission Date: 20180711
  Serious: Yes (Hospitalization)
  Sender: FDA-Public Use
  Company Number: FR-TEVA-2018-FR-911967

PATIENT
  Age: 93 Year
  Sex: Male
  Weight: 49 kg

DRUGS (2)
  1. COLCHICINE OPOCALCIUM 1 MG, COMPRIM? [Suspect]
     Active Substance: COLCHICINE
     Indication: GOUT
     Dosage: SEE COMMENT COMPRESSED
     Route: 048
     Dates: start: 20180423, end: 20180503
  2. FUROSEMIDE. [Suspect]
     Active Substance: FUROSEMIDE
     Indication: HYPERTENSION
     Dosage: 20 MILLIGRAM DAILY;
     Route: 048
     Dates: end: 20180503

REACTIONS (2)
  - Acute kidney injury [Recovering/Resolving]
  - Hypernatraemia [Recovered/Resolved]

NARRATIVE: CASE EVENT DATE: 20180503
